FAERS Safety Report 9799995 (Version 1)
Quarter: 2014Q1

REPORT INFORMATION
  Report Type: Spontaneous
  Country: US (occurrence: US)
  Receive Date: 20140106
  Receipt Date: 20140106
  Transmission Date: 20141002
  Serious: No
  Sender: FDA-Public Use
  Company Number: US-GILEAD-2010-0030830

PATIENT
  Age: 58 Year
  Sex: Female
  Weight: 95.25 kg

DRUGS (12)
  1. LETAIRIS [Suspect]
     Indication: PULMONARY ARTERIAL HYPERTENSION
     Route: 048
     Dates: start: 20100215
  2. NEXIUM [Concomitant]
  3. OXYGEN [Concomitant]
  4. FUROSEMIDE [Concomitant]
  5. ALPHAGAN [Concomitant]
  6. TYLENOL EX STR [Concomitant]
  7. BENZONATATE [Concomitant]
  8. SYNTHROID [Concomitant]
  9. LANOXIN [Concomitant]
  10. SPIRONOLACTONE [Concomitant]
  11. TYVASO [Concomitant]
  12. REVATIO [Concomitant]

REACTIONS (1)
  - Mass [Unknown]
